FAERS Safety Report 8079364-6 (Version None)
Quarter: 2012Q1

REPORT INFORMATION
  Report Type: 
  Country: None (occurrence: None)
  Receive Date: 20120128
  Receipt Date: 20110822
  Transmission Date: 20120608
  Serious: No
  Sender: FDA-Public Use
  Company Number: US-ABBOTT-11P-163-0848412-00

PATIENT
  Sex: Female
  Weight: 81.72 kg

DRUGS (11)
  1. DIAZEPAM [Concomitant]
     Indication: INSOMNIA
  2. PLAQUENIL [Concomitant]
     Indication: FATIGUE
  3. VITAMIN D [Concomitant]
     Indication: VITAMIN D DECREASED
  4. SULFASALAZINE [Concomitant]
     Indication: INFLAMMATION
  5. HUMIRA [Suspect]
     Indication: RHEUMATOID ARTHRITIS
     Dates: start: 20080101
  6. HYDROCODONE BITARTRATE [Concomitant]
     Indication: PAIN
  7. WELLBUTRIN [Concomitant]
     Indication: DEPRESSION
  8. AMBIEN [Concomitant]
     Indication: INSOMNIA
  9. METHOTREXATE [Concomitant]
     Indication: RHEUMATOID ARTHRITIS
  10. GLUCOSAMINE [Concomitant]
     Indication: ARTHROPATHY
  11. IBUPROFEN [Concomitant]
     Indication: INFLAMMATION

REACTIONS (6)
  - INJECTION SITE PAIN [None]
  - INFLUENZA LIKE ILLNESS [None]
  - INCORRECT STORAGE OF DRUG [None]
  - STAPHYLOCOCCAL INFECTION [None]
  - INJECTION SITE DISCOLOURATION [None]
  - INJECTION SITE VESICLES [None]
